FAERS Safety Report 23219831 (Version 3)
Quarter: 2024Q3

REPORT INFORMATION
  Report Type: Spontaneous
  Country: US (occurrence: US)
  Receive Date: 20231122
  Receipt Date: 20240822
  Transmission Date: 20241017
  Serious: No
  Sender: AVADEL CNS PHARMA
  Company Number: US-AVADEL CNS PHARMACEUTICALS, LLC-2023AVA00084

PATIENT
  Age: 22 Year
  Sex: Male

DRUGS (9)
  1. LUMRYZ [Suspect]
     Active Substance: SODIUM OXYBATE
     Indication: Narcolepsy
     Dosage: 4.5 G, ONCE NIGHTLY
     Route: 048
     Dates: start: 20230805
  2. LUMRYZ [Suspect]
     Active Substance: SODIUM OXYBATE
     Indication: Cataplexy
  3. LUMRYZ [Suspect]
     Active Substance: SODIUM OXYBATE
     Indication: Initial insomnia
  4. LUMRYZ [Suspect]
     Active Substance: SODIUM OXYBATE
     Indication: Middle insomnia
  5. LUMRYZ [Suspect]
     Active Substance: SODIUM OXYBATE
     Indication: Narcolepsy
     Dosage: 9 G, ONCE NIGHTLY
     Route: 048
  6. LUMRYZ [Suspect]
     Active Substance: SODIUM OXYBATE
     Indication: Cataplexy
  7. LUMRYZ [Suspect]
     Active Substance: SODIUM OXYBATE
     Indication: Initial insomnia
  8. LUMRYZ [Suspect]
     Active Substance: SODIUM OXYBATE
     Indication: Middle insomnia
  9. UNSPECIFIED INGREDIENT [Concomitant]
     Active Substance: UNSPECIFIED INGREDIENT

REACTIONS (18)
  - Bladder pain [Recovered/Resolved]
  - Insomnia [Not Recovered/Not Resolved]
  - Initial insomnia [Not Recovered/Not Resolved]
  - Sinusitis [Unknown]
  - Hot flush [Unknown]
  - Body temperature increased [Unknown]
  - Heart rate increased [Unknown]
  - Hypersomnia [Not Recovered/Not Resolved]
  - Pain [Not Recovered/Not Resolved]
  - Dry mouth [Not Recovered/Not Resolved]
  - Headache [Unknown]
  - Enuresis [Unknown]
  - Hypertension [Unknown]
  - Nausea [Unknown]
  - Vomiting [Unknown]
  - Therapeutic product effect variable [Unknown]
  - Incorrect dose administered [Unknown]
  - Product preparation issue [Unknown]

NARRATIVE: CASE EVENT DATE: 20230801
